FAERS Safety Report 18906454 (Version 1)
Quarter: 2021Q1

REPORT INFORMATION
  Report Type: Spontaneous
  Country: US (occurrence: US)
  Receive Date: 20210218
  Receipt Date: 20210218
  Transmission Date: 20210420
  Serious: No
  Sender: FDA-Public Use
  Company Number: US-009507513-2102USA003451

PATIENT
  Age: 32 Year
  Sex: Male

DRUGS (1)
  1. NOXAFIL [Suspect]
     Active Substance: POSACONAZOLE
     Indication: COCCIDIOIDOMYCOSIS
     Dosage: 900 MILLIGRAM, BID
     Route: 048

REACTIONS (2)
  - Product use in unapproved indication [Unknown]
  - Incorrect dose administered [Unknown]
